FAERS Safety Report 24201894 (Version 1)
Quarter: 2024Q3

REPORT INFORMATION
  Report Type: Spontaneous
  Country: PL (occurrence: PL)
  Receive Date: 20240812
  Receipt Date: 20240812
  Transmission Date: 20241016
  Serious: Yes (Other)
  Sender: REGENERON
  Company Number: PL-REGENERON PHARMACEUTICALS, INC.-2024-108652

PATIENT
  Age: 82 Year
  Sex: Male

DRUGS (2)
  1. LIBTAYO [Suspect]
     Active Substance: CEMIPLIMAB-RWLC
     Indication: Squamous cell carcinoma of skin
     Dosage: 350 MG, Q3W
     Route: 042
     Dates: start: 202303
  2. LIBTAYO [Suspect]
     Active Substance: CEMIPLIMAB-RWLC
     Indication: Basal cell carcinoma

REACTIONS (1)
  - Tumour pseudoprogression [Unknown]
